FAERS Safety Report 7637175-7 (Version None)
Quarter: 2011Q3

REPORT INFORMATION
  Report Type: 
  Country: None (occurrence: None)
  Receive Date: 20110726
  Receipt Date: 20110713
  Transmission Date: 20111222
  Serious: Yes (Other)
  Sender: FDA-Public Use
  Company Number: PHEH2010US02624

PATIENT
  Sex: Female

DRUGS (7)
  1. ALPRAZOLAM [Concomitant]
  2. PAROXETINE HCL [Concomitant]
  3. DURAGESIC-100 [Concomitant]
  4. PIROXICAM [Concomitant]
  5. AREDIA [Suspect]
     Indication: MULTIPLE MYELOMA
  6. ZOMETA [Suspect]
  7. PROTONIX [Concomitant]

REACTIONS (40)
  - ANXIETY [None]
  - EXPOSED BONE IN JAW [None]
  - SPINAL DEFORMITY [None]
  - CHRONIC OBSTRUCTIVE PULMONARY DISEASE [None]
  - RED BLOOD CELL COUNT DECREASED [None]
  - HAEMOGLOBIN DECREASED [None]
  - GASTROOESOPHAGEAL REFLUX DISEASE [None]
  - PHYSICAL DISABILITY [None]
  - BONE LESION [None]
  - BLOOD CREATININE INCREASED [None]
  - BLOOD CHOLESTEROL INCREASED [None]
  - GLOMERULAR FILTRATION RATE DECREASED [None]
  - INJURY [None]
  - OSTEOMYELITIS [None]
  - DEPRESSION [None]
  - ANAEMIA [None]
  - SWELLING FACE [None]
  - NAUSEA [None]
  - ABSCESS NECK [None]
  - INTERVERTEBRAL DISC PROTRUSION [None]
  - DRUG HYPERSENSITIVITY [None]
  - BIPOLAR DISORDER [None]
  - PAIN [None]
  - ANHEDONIA [None]
  - MOUTH ULCERATION [None]
  - URINARY TRACT INFECTION [None]
  - LUMBAR SPINAL STENOSIS [None]
  - VOMITING [None]
  - ARTHRITIS [None]
  - ABSCESS ORAL [None]
  - INFECTION [None]
  - PARAESTHESIA ORAL [None]
  - OSTEOARTHRITIS [None]
  - RESPIRATORY TRACT INFECTION [None]
  - OSTEONECROSIS OF JAW [None]
  - HYPOAESTHESIA ORAL [None]
  - PYREXIA [None]
  - FISTULA DISCHARGE [None]
  - RENAL FAILURE [None]
  - WEIGHT DECREASED [None]
